FAERS Safety Report 21076110 (Version 2)
Quarter: 2022Q4

REPORT INFORMATION
  Report Type: Spontaneous
  Country: PL (occurrence: PL)
  Receive Date: 20220713
  Receipt Date: 20221206
  Transmission Date: 20230113
  Serious: Yes (Other)
  Sender: FDA-Public Use
  Company Number: PL-002147023-NVSC2022PL147156

PATIENT
  Age: 50 Year
  Sex: Male

DRUGS (3)
  1. INFLIXIMAB [Suspect]
     Active Substance: INFLIXIMAB
     Indication: Ankylosing spondylitis
     Dosage: 5 MG/KG
     Dates: start: 2007, end: 2013
  2. METHOTREXATE [Suspect]
     Active Substance: METHOTREXATE
     Indication: Ankylosing spondylitis
     Dosage: 10 MG, QW
     Dates: start: 2007, end: 2013
  3. CYCLOSPORINE [Concomitant]
     Active Substance: CYCLOSPORINE
     Dosage: UNK

REACTIONS (9)
  - Ankylosing spondylitis [Unknown]
  - Dactylitis [Unknown]
  - Sacroiliitis [Unknown]
  - Liver injury [Unknown]
  - Pain [Unknown]
  - Joint swelling [Unknown]
  - Lung disorder [Unknown]
  - Drug intolerance [Unknown]
  - Off label use [Unknown]
